FAERS Safety Report 9925004 (Version 5)
Quarter: 2014Q2

REPORT INFORMATION
  Report Type: Spontaneous
  Country: US (occurrence: US)
  Receive Date: 20140226
  Receipt Date: 20140609
  Transmission Date: 20141212
  Serious: Yes (Hospitalization, Disabling, Other)
  Sender: FDA-Public Use
  Company Number: US-009507513-1204USA00548

PATIENT
  Sex: Female
  Weight: 65.31 kg

DRUGS (6)
  1. FOSAMAX [Suspect]
     Indication: OSTEOPOROSIS
     Dosage: 70 MG, QW
     Route: 048
     Dates: start: 199807
  2. ALENDRONATE SODIUM [Suspect]
     Indication: OSTEOPOROSIS
     Dosage: 70 MG, QW
     Route: 048
     Dates: start: 20080502, end: 201003
  3. CALCIUM (UNSPECIFIED) [Concomitant]
     Dosage: 600-1200 MG, UNK
  4. CYANOCOBALAMIN [Concomitant]
     Dosage: 500 MG, QD
  5. VITAMINS (UNSPECIFIED) [Concomitant]
     Dosage: UNK, QD
  6. LISINOPRIL [Concomitant]
     Indication: HYPERTENSION
     Dosage: UNK
     Dates: start: 2004

REACTIONS (18)
  - Femur fracture [Not Recovered/Not Resolved]
  - Intramedullary rod insertion [Unknown]
  - Bone disorder [Not Recovered/Not Resolved]
  - Osteoporosis [Not Recovered/Not Resolved]
  - Stress fracture [Not Recovered/Not Resolved]
  - Low turnover osteopathy [Not Recovered/Not Resolved]
  - Basal cell carcinoma [Unknown]
  - Basal cell carcinoma [Unknown]
  - Spinal compression fracture [Unknown]
  - Lumbar spinal stenosis [Unknown]
  - Back pain [Unknown]
  - Dermatitis contact [Unknown]
  - Aortic disorder [Unknown]
  - Ventricular extrasystoles [Unknown]
  - Bursitis [Unknown]
  - Osteopenia [Unknown]
  - Foot fracture [Unknown]
  - Urogenital atrophy [Unknown]
